FAERS Safety Report 23848097 (Version 1)
Quarter: 2024Q2

REPORT INFORMATION
  Report Type: Spontaneous
  Country: US (occurrence: None)
  Receive Date: 20240510
  Receipt Date: 20240510
  Transmission Date: 20240715
  Serious: Yes (Hospitalization)
  Sender: FDA-Public Use
  Company Number: None

PATIENT
  Age: 64 Year
  Sex: Male
  Weight: 136 kg

DRUGS (1)
  1. NIRMATRELVIR\RITONAVIR [Suspect]
     Active Substance: NIRMATRELVIR\RITONAVIR
     Indication: COVID-19
     Dosage: PO
     Route: 048
     Dates: start: 20220610, end: 20220614

REACTIONS (4)
  - Hypoxia [None]
  - Dyspnoea [None]
  - COVID-19 [None]
  - Treatment failure [None]

NARRATIVE: CASE EVENT DATE: 20220620
